FAERS Safety Report 7630437-9 (Version None)
Quarter: 2011Q3

REPORT INFORMATION
  Report Type: 
  Country: None (occurrence: None)
  Receive Date: 20110722
  Receipt Date: 20110715
  Transmission Date: 20111222
  Serious: Yes (Other)
  Sender: FDA-Public Use
  Company Number: JP-GLAXOSMITHKLINE-B0733957A

PATIENT
  Age: 64 Year
  Sex: Female

DRUGS (2)
  1. ZANTAC [Suspect]
     Indication: PRODUCT USED FOR UNKNOWN INDICATION
     Dosage: 300MG PER DAY
     Route: 048
     Dates: start: 20110708
  2. PREDNISOLONE [Concomitant]
     Route: 048
     Dates: start: 20110708

REACTIONS (1)
  - METRORRHAGIA [None]
